FAERS Safety Report 9828345 (Version 3)
Quarter: 2014Q2

REPORT INFORMATION
  Report Type: Spontaneous
  Country: US (occurrence: US)
  Receive Date: 20140117
  Receipt Date: 20140515
  Transmission Date: 20141212
  Serious: Yes (Death, Hospitalization)
  Sender: FDA-Public Use
  Company Number: US-GLAXOSMITHKLINE-A1056597A

PATIENT
  Age: 65 Year
  Sex: Female

DRUGS (9)
  1. TYKERB [Suspect]
     Indication: SALIVARY GLAND CANCER
     Dosage: 500MG PER DAY
     Route: 048
     Dates: start: 20131105, end: 20131114
  2. SERTRALINE [Concomitant]
  3. POTASSIUM [Concomitant]
  4. MAGNESIUM OXIDE [Concomitant]
  5. SYNTHROID [Concomitant]
  6. HYDROCORTISONE [Concomitant]
  7. GABAPENTIN [Concomitant]
  8. IRON [Concomitant]
  9. OMEPRAZOLE [Concomitant]

REACTIONS (3)
  - Head and neck cancer [Fatal]
  - Malignant neoplasm progression [Unknown]
  - Metastases to liver [Fatal]
